FAERS Safety Report 25263931 (Version 1)
Quarter: 2025Q2

REPORT INFORMATION
  Report Type: Spontaneous
  Country: BE (occurrence: BE)
  Receive Date: 20250502
  Receipt Date: 20250502
  Transmission Date: 20250716
  Serious: Yes (Other)
  Sender: ORGANON
  Company Number: None

PATIENT
  Sex: Male

DRUGS (2)
  1. DIPROPHOS [Suspect]
     Active Substance: BETAMETHASONE DIPROPIONATE\BETAMETHASONE SODIUM PHOSPHATE
     Indication: Inflammation
     Dates: start: 20250319
  2. DIPROPHOS [Suspect]
     Active Substance: BETAMETHASONE DIPROPIONATE\BETAMETHASONE SODIUM PHOSPHATE
     Indication: Limb injury

REACTIONS (5)
  - Paraesthesia [Unknown]
  - Facial pain [Unknown]
  - Loss of consciousness [Unknown]
  - Accident [Unknown]
  - Visual impairment [Unknown]

NARRATIVE: CASE EVENT DATE: 20250319
